FAERS Safety Report 11098048 (Version 1)
Quarter: 2015Q2

REPORT INFORMATION
  Report Type: Spontaneous
  Country: US (occurrence: US)
  Receive Date: 20150507
  Receipt Date: 20150507
  Transmission Date: 20150821
  Serious: No
  Sender: FDA-Public Use
  Company Number: US-ELI_LILLY_AND_COMPANY-US201504004910

PATIENT

DRUGS (1)
  1. HUMULIN 70/30 [Suspect]
     Active Substance: INSULIN HUMAN
     Indication: DIABETES MELLITUS
     Dosage: 18 U, BID
     Route: 065
     Dates: start: 20150327

REACTIONS (3)
  - Pain in extremity [Unknown]
  - Blood glucose abnormal [Unknown]
  - Drug effect decreased [Unknown]
